FAERS Safety Report 11137593 (Version 1)
Quarter: 2015Q2

REPORT INFORMATION
  Report Type: Spontaneous
  Country: US (occurrence: US)
  Receive Date: 20150526
  Receipt Date: 20150526
  Transmission Date: 20150821
  Serious: Yes (Death, Hospitalization)
  Sender: FDA-Public Use
  Company Number: PHHY2015US060751

PATIENT
  Age: 23 Year
  Sex: Female

DRUGS (8)
  1. VANCOMYCIN [Suspect]
     Active Substance: VANCOMYCIN
     Indication: FEBRILE NEUTROPENIA
  2. FLUCONAZOLE. [Concomitant]
     Active Substance: FLUCONAZOLE
     Indication: FEBRILE NEUTROPENIA
     Route: 065
  3. ACYCLOVIR. [Concomitant]
     Active Substance: ACYCLOVIR
     Indication: FEBRILE NEUTROPENIA
  4. ACYCLOVIR. [Concomitant]
     Active Substance: ACYCLOVIR
     Indication: CYSTITIS HAEMORRHAGIC
     Route: 065
  5. CEFEPIME [Suspect]
     Active Substance: CEFEPIME\CEFEPIME HYDROCHLORIDE
     Indication: CYSTITIS HAEMORRHAGIC
     Route: 065
  6. CEFEPIME [Suspect]
     Active Substance: CEFEPIME\CEFEPIME HYDROCHLORIDE
     Indication: FEBRILE NEUTROPENIA
  7. VANCOMYCIN [Suspect]
     Active Substance: VANCOMYCIN
     Indication: CYSTITIS HAEMORRHAGIC
     Route: 065
  8. FLUCONAZOLE. [Concomitant]
     Active Substance: FLUCONAZOLE
     Indication: CYSTITIS HAEMORRHAGIC

REACTIONS (12)
  - Rash pruritic [Fatal]
  - Photophobia [Unknown]
  - Lower gastrointestinal haemorrhage [Unknown]
  - Abdominal pain [Unknown]
  - Vomiting [Unknown]
  - Neutropenia [Unknown]
  - Shock [Unknown]
  - Toxic epidermal necrolysis [Fatal]
  - Graft versus host disease [Unknown]
  - Thrombocytopenia [Unknown]
  - Hypoxia [Unknown]
  - Pathogen resistance [Unknown]
